FAERS Safety Report 12496210 (Version 1)
Quarter: 2016Q2

REPORT INFORMATION
  Report Type: Spontaneous
  Country: ZA (occurrence: ZA)
  Receive Date: 20160624
  Receipt Date: 20160624
  Transmission Date: 20160815
  Serious: Yes (Death, Hospitalization)
  Sender: FDA-Public Use
  Company Number: ZA-PFIZER INC-2016310740

PATIENT
  Age: 59 Year
  Sex: Female

DRUGS (6)
  1. ERAXIS [Suspect]
     Active Substance: ANIDULAFUNGIN
     Indication: SEPSIS
     Dosage: UNK
  2. TIGECYCLINE. [Concomitant]
     Active Substance: TIGECYCLINE
     Indication: FUNGAL SEPSIS
     Dosage: UNK
  3. COLISTIN [Concomitant]
     Active Substance: COLISTIN
     Indication: SEPSIS
     Dosage: UNK
  4. MEROPENEM. [Concomitant]
     Active Substance: MEROPENEM
     Indication: FUNGAL SEPSIS
     Dosage: UNK
  5. BACTRIM [Concomitant]
     Active Substance: SULFAMETHOXAZOLE\TRIMETHOPRIM
     Dosage: UNK
  6. LINEZOLID. [Concomitant]
     Active Substance: LINEZOLID
     Indication: FUNGAL SEPSIS
     Dosage: UNK

REACTIONS (3)
  - Hepatic failure [Fatal]
  - Drug ineffective [Fatal]
  - Product quality issue [Fatal]
